FAERS Safety Report 10177293 (Version 3)
Quarter: 2014Q2

REPORT INFORMATION
  Report Type: Report from Study
  Country: DE (occurrence: DE)
  Receive Date: 20140516
  Receipt Date: 20140611
  Transmission Date: 20141212
  Serious: Yes (Hospitalization)
  Sender: FDA-Public Use
  Company Number: DE-GLAXOSMITHKLINE-B0993730A

PATIENT
  Sex: Male

DRUGS (5)
  1. PAZOPANIB [Suspect]
     Indication: METASTATIC RENAL CELL CARCINOMA
     Dosage: 800MG PER DAY
     Dates: start: 20140425
  2. ASS [Concomitant]
     Dosage: 100MG PER DAY
     Dates: start: 2008
  3. METOPROLOL SUCCINAT [Concomitant]
     Dosage: 23.75MG PER DAY
     Dates: start: 2008
  4. SIMVASTATIN [Concomitant]
     Dosage: 20MG PER DAY
     Dates: start: 2008
  5. LERCANIDIPINE HYDROCHLORIDE [Concomitant]
     Dates: start: 20140505

REACTIONS (1)
  - General physical health deterioration [Recovered/Resolved]
